FAERS Safety Report 18007020 (Version 1)
Quarter: 2020Q3

REPORT INFORMATION
  Report Type: Report from Study
  Country: US (occurrence: US)
  Receive Date: 20200710
  Receipt Date: 20200710
  Transmission Date: 20201103
  Serious: No
  Sender: FDA-Public Use
  Company Number: US-AGIOS-2007US02022

PATIENT

DRUGS (2)
  1. DIVALPROEX [Concomitant]
     Active Substance: DIVALPROEX SODIUM
     Indication: SEIZURE
     Dosage: UNK
  2. TIBSOVO [Suspect]
     Active Substance: IVOSIDENIB
     Indication: PRODUCT USED FOR UNKNOWN INDICATION
     Dosage: 500 MILLIGRAM, QD
     Route: 048

REACTIONS (2)
  - Fall [Unknown]
  - Balance disorder [Unknown]
